FAERS Safety Report 18215348 (Version 1)
Quarter: 2020Q3

REPORT INFORMATION
  Report Type: Spontaneous
  Country: US (occurrence: US)
  Receive Date: 20200831
  Receipt Date: 20200831
  Transmission Date: 20201103
  Serious: Yes (Hospitalization)
  Sender: FDA-Public Use
  Company Number: US-MAYNE PHARMA-2020MYN000426

PATIENT

DRUGS (1)
  1. AMIODARONE HYDROCHLORIDE. [Suspect]
     Active Substance: AMIODARONE HYDROCHLORIDE
     Indication: TACHYCARDIA
     Dosage: UNK
     Route: 048
     Dates: start: 202007, end: 20200820

REACTIONS (3)
  - Renal failure [Unknown]
  - Dyspnoea [Unknown]
  - Back pain [Unknown]

NARRATIVE: CASE EVENT DATE: 2020
